FAERS Safety Report 7230742-4 (Version None)
Quarter: 2011Q1

REPORT INFORMATION
  Report Type: 
  Country: None (occurrence: None)
  Receive Date: 20110118
  Receipt Date: 20110113
  Transmission Date: 20110831
  Serious: No
  Sender: FDA-Public Use
  Company Number: US-PFIZER INC-2011007034

PATIENT
  Age: 80 Year
  Sex: Female
  Weight: 55.329 kg

DRUGS (6)
  1. DILTIAZEM [Concomitant]
     Indication: HYPERTENSION
     Dosage: 240 MG, 1X/DAY
     Route: 048
  2. PROTONIX [Suspect]
     Indication: GASTRIC ULCER
     Dosage: 40 MG, 2X/DAY
     Route: 048
     Dates: start: 20110106, end: 20110109
  3. LEVOTHYROXINE [Concomitant]
     Indication: THYROID DISORDER
     Dosage: 75 MG, 1X/DAY
     Route: 048
  4. ACETYLSALICYLIC ACID [Concomitant]
     Indication: CEREBROVASCULAR ACCIDENT
     Dosage: 81 MG, 1X/DAY
     Route: 048
  5. PROTONIX [Suspect]
     Indication: HYPERCHLORHYDRIA
  6. HYDROCHLOROTHIAZIDE [Concomitant]
     Indication: DIURETIC THERAPY
     Dosage: 0.5 MG, 1X/DAY
     Route: 048

REACTIONS (2)
  - BLADDER DISCOMFORT [None]
  - CYSTITIS [None]
